FAERS Safety Report 5245356-5 (Version None)
Quarter: 2007Q1

REPORT INFORMATION
  Report Type: 
  Country: None (occurrence: None)
  Receive Date: 20070223
  Receipt Date: 20070213
  Transmission Date: 20070707
  Serious: Yes (Other)
  Sender: FDA-Public Use
  Company Number: PHEH2006US14709

PATIENT
  Age: 44 Year
  Sex: Female
  Weight: 75.918 kg

DRUGS (3)
  1. FEMARA [Suspect]
     Dosage: 2.5 MG, QD
     Route: 048
     Dates: start: 20050309
  2. LUPRON [Suspect]
     Dosage: 22.5 MG, UNK
     Route: 030
     Dates: start: 20050301
  3. DYAZIDE [Concomitant]
     Dosage: 5 MG, QD
     Route: 048
     Dates: start: 20050301

REACTIONS (9)
  - AMNESIA [None]
  - ARTHRALGIA [None]
  - FATIGUE [None]
  - HEADACHE [None]
  - MYALGIA [None]
  - PAIN IN EXTREMITY [None]
  - SLEEP APNOEA SYNDROME [None]
  - STRESS [None]
  - WEIGHT INCREASED [None]
